FAERS Safety Report 12997615 (Version 1)
Quarter: 2016Q4

REPORT INFORMATION
  Report Type: Spontaneous
  Country: CA (occurrence: CA)
  Receive Date: 20161205
  Receipt Date: 20161205
  Transmission Date: 20170207
  Serious: Yes (Other)
  Sender: FDA-Public Use
  Company Number: CA-ORION CORPORATION ORION PHARMA-TREX2016-2043

PATIENT
  Age: 77 Year
  Sex: Female

DRUGS (1)
  1. METHOTREXATE. [Suspect]
     Active Substance: METHOTREXATE
     Dosage: STRENGTH : 2.5 MG
     Route: 048

REACTIONS (6)
  - Skin reaction [Unknown]
  - Product quality issue [Unknown]
  - Drug intolerance [Unknown]
  - Pulmonary fibrosis [Unknown]
  - Drug ineffective [Unknown]
  - Rash [Unknown]
